FAERS Safety Report 6719154-7 (Version None)
Quarter: 2010Q2

REPORT INFORMATION
  Report Type: 
  Country: None (occurrence: None)
  Receive Date: 20100510
  Receipt Date: 20100510
  Transmission Date: 20101027
  Serious: No
  Sender: FDA-Public Use
  Company Number: None

PATIENT
  Age: 56 Year
  Sex: Female

DRUGS (2)
  1. TOPIRAMATE [Suspect]
     Dosage: 100MG 1 BID ORAL
     Route: 048
     Dates: start: 20090422
  2. TOPIRAMATE [Suspect]
     Dosage: 100MG 1 BID ORAL
     Route: 048
     Dates: start: 20100401

REACTIONS (3)
  - DIARRHOEA [None]
  - INSOMNIA [None]
  - URTICARIA [None]
